FAERS Safety Report 20347563 (Version 2)
Quarter: 2022Q1

REPORT INFORMATION
  Report Type: Spontaneous
  Country: US (occurrence: US)
  Receive Date: 20220118
  Receipt Date: 20220215
  Transmission Date: 20220423
  Serious: Yes (Hospitalization, Other)
  Sender: FDA-Public Use
  Company Number: US-009507513-2201USA002597

PATIENT
  Age: 31 Year
  Sex: Male

DRUGS (4)
  1. DIFICID [Suspect]
     Active Substance: FIDAXOMICIN
     Indication: Clostridium difficile infection
     Dosage: 200 MILLIGRAM, TWICE DAILY
     Route: 048
     Dates: start: 202105, end: 20211229
  2. VANCOMYCIN [Suspect]
     Active Substance: VANCOMYCIN
  3. PREDNISONE [Concomitant]
     Active Substance: PREDNISONE
  4. STELARA [Concomitant]
     Active Substance: USTEKINUMAB

REACTIONS (4)
  - Blood loss anaemia [Unknown]
  - Diarrhoea [Not Recovered/Not Resolved]
  - Colitis [Not Recovered/Not Resolved]
  - Clostridium test positive [Unknown]

NARRATIVE: CASE EVENT DATE: 20210501
